FAERS Safety Report 6651773-9 (Version None)
Quarter: 2010Q1

REPORT INFORMATION
  Report Type: 
  Country: None (occurrence: None)
  Receive Date: 20100325
  Receipt Date: 20100316
  Transmission Date: 20100710
  Serious: Yes (Other)
  Sender: FDA-Public Use
  Company Number: CA-JNJFOC-20100305137

PATIENT
  Sex: Female
  Weight: 72 kg

DRUGS (10)
  1. REMICADE [Suspect]
     Indication: PSORIASIS
     Route: 042
  2. REMICADE [Suspect]
     Route: 042
  3. METHOTREXATE [Concomitant]
  4. LIPITOR [Concomitant]
  5. NOVO HYDRAZIDE [Concomitant]
  6. RAMIPRIL-RATIOPHARM [Concomitant]
  7. APO-FOLIC [Concomitant]
  8. NOVO-HYDROXYZIN [Concomitant]
  9. SANDOZ BISOPROLOL [Concomitant]
  10. SORIATANE [Concomitant]

REACTIONS (2)
  - OVARIAN CYST [None]
  - URINARY TRACT INFECTION [None]
